FAERS Safety Report 9435923 (Version 3)
Quarter: 2015Q2

REPORT INFORMATION
  Report Type: Report from Study
  Country: US (occurrence: US)
  Receive Date: 20130801
  Receipt Date: 20150422
  Transmission Date: 20150821
  Serious: Yes (Death, Other)
  Sender: FDA-Public Use
  Company Number: US-BAXTER-2013BAX030244

PATIENT
  Age: 55 Year

DRUGS (10)
  1. VINCRISTINE [Suspect]
     Active Substance: VINCRISTINE
     Indication: PRODUCT USED FOR UNKNOWN INDICATION
     Route: 042
     Dates: start: 20130201, end: 20130221
  2. RITUXAN [Suspect]
     Active Substance: RITUXIMAB
     Indication: CHRONIC LYMPHOCYTIC LEUKAEMIA
     Dosage: ON DAY 1 EVERY 21 DAYS
     Route: 042
     Dates: start: 20130201, end: 20130226
  3. DOXORUBICIN [Suspect]
     Active Substance: DOXORUBICIN
     Indication: PRODUCT USED FOR UNKNOWN INDICATION
     Route: 042
     Dates: start: 20130201, end: 20130221
  4. DEXAMETHASONE. [Suspect]
     Active Substance: DEXAMETHASONE
     Indication: PRODUCT USED FOR UNKNOWN INDICATION
     Route: 048
     Dates: start: 20130201, end: 20130221
  5. METHOTREXATE [Suspect]
     Active Substance: METHOTREXATE
     Dosage: LOADING DOSE OF 200MG/M2 THEN 800MG/M2 FOLLOWING
     Route: 042
     Dates: end: 20130226
  6. ALEMTUZUMAB [Suspect]
     Active Substance: ALEMTUZUMAB
     Indication: PRODUCT USED FOR UNKNOWN INDICATION
     Route: 042
     Dates: start: 20130321, end: 20130321
  7. CYCLOPHOSPHAMIDE FOR INJECTION, USP [Suspect]
     Active Substance: CYCLOPHOSPHAMIDE
     Indication: PRODUCT USED FOR UNKNOWN INDICATION
     Route: 042
     Dates: start: 20130201, end: 20130221
  8. LEUCOVORIN RESCUE [Suspect]
     Active Substance: LEUCOVORIN
     Indication: CHRONIC LYMPHOCYTIC LEUKAEMIA
     Route: 048
     Dates: start: 20130222, end: 20130314
  9. METHOTREXATE [Suspect]
     Active Substance: METHOTREXATE
     Indication: CHRONIC LYMPHOCYTIC LEUKAEMIA
     Dosage: LOADING DOSE THEN 800MG/M2 FOLLOWING
     Route: 042
     Dates: start: 20130222, end: 20130226
  10. CYTARABINE. [Suspect]
     Active Substance: CYTARABINE
     Indication: CHRONIC LYMPHOCYTIC LEUKAEMIA
     Dosage: 3 G/M2 ON DAYS 2 AND 3
     Route: 042
     Dates: start: 20130222, end: 20130225

REACTIONS (3)
  - Febrile neutropenia [Unknown]
  - Death [Fatal]
  - Chronic lymphocytic leukaemia [Unknown]

NARRATIVE: CASE EVENT DATE: 20130302
